FAERS Safety Report 7451730-9 (Version None)
Quarter: 2011Q2

REPORT INFORMATION
  Report Type: 
  Country: None (occurrence: None)
  Receive Date: 20110502
  Receipt Date: 20100802
  Transmission Date: 20111010
  Serious: No
  Sender: FDA-Public Use
  Company Number: US-ASTRAZENECA-2010SE36072

PATIENT
  Age: 64 Year
  Sex: Female
  Weight: 88.5 kg

DRUGS (2)
  1. NEXIUM [Suspect]
     Indication: GASTROOESOPHAGEAL REFLUX DISEASE
     Route: 048
     Dates: start: 20020101
  2. BLOOD PRESSURE MEDS [Concomitant]

REACTIONS (5)
  - WRIST FRACTURE [None]
  - OSTEOPOROSIS [None]
  - FRACTURE [None]
  - DRUG DOSE OMISSION [None]
  - OSTEOPENIA [None]
